FAERS Safety Report 23745612 (Version 1)
Quarter: 2024Q2

REPORT INFORMATION
  Report Type: Spontaneous
  Country: SI (occurrence: SI)
  Receive Date: 20240416
  Receipt Date: 20240416
  Transmission Date: 20240716
  Serious: No
  Sender: FDA-Public Use
  Company Number: SI-ALKEM LABORATORIES LIMITED-SI-ALKEM-2023-16265

PATIENT
  Age: 67 Year
  Sex: Female

DRUGS (22)
  1. OLANZAPINE [Suspect]
     Active Substance: OLANZAPINE
     Indication: Schizophrenia
     Dosage: 5 MILLIGRAM
     Route: 065
  2. OLANZAPINE [Suspect]
     Active Substance: OLANZAPINE
     Indication: Insomnia
     Dosage: 5 MILLIGRAM (RE-INTRODUCED) ON THE FIRST DAY
     Route: 048
  3. OLANZAPINE [Suspect]
     Active Substance: OLANZAPINE
     Dosage: 10 MILLIGRAM (INCREASED)
     Route: 048
  4. OLANZAPINE [Suspect]
     Active Substance: OLANZAPINE
     Dosage: 15 MILLIGRAM (INCREASED)
     Route: 048
  5. OLANZAPINE [Suspect]
     Active Substance: OLANZAPINE
     Dosage: UNK (RAISED 3 DAYS AFTER)
     Route: 048
  6. OLANZAPINE [Suspect]
     Active Substance: OLANZAPINE
     Dosage: 20 MILLIGRAM (RAISED)
     Route: 048
  7. ARIPIPRAZOLE [Suspect]
     Active Substance: ARIPIPRAZOLE
     Indication: Schizophrenia
     Dosage: UNK
     Route: 065
  8. CARIPRAZINE [Suspect]
     Active Substance: CARIPRAZINE
     Indication: Schizophrenia
     Dosage: 1.5 MILLIGRAM
     Route: 065
  9. CARIPRAZINE [Suspect]
     Active Substance: CARIPRAZINE
     Dosage: 3 MILLIGRAM (INCREASED)
     Route: 065
  10. CARIPRAZINE [Suspect]
     Active Substance: CARIPRAZINE
     Dosage: 4.5 MILLIGRAM (RAISED)
     Route: 065
  11. CLOZAPINE [Suspect]
     Active Substance: CLOZAPINE
     Indication: Schizophrenia
     Dosage: 25 MILLIGRAM
     Route: 065
  12. CLOZAPINE [Suspect]
     Active Substance: CLOZAPINE
     Dosage: UNK (RESTARTED)
     Route: 065
  13. LORAZEPAM [Suspect]
     Active Substance: LORAZEPAM
     Indication: Schizophrenia
     Dosage: UNK, QD (THREE DAILY DOSES)
     Route: 048
  14. LORAZEPAM [Suspect]
     Active Substance: LORAZEPAM
     Dosage: 2 MG/DAY
     Route: 048
  15. LORAZEPAM [Suspect]
     Active Substance: LORAZEPAM
     Dosage: 3 MG/DAY
     Route: 048
  16. LORAZEPAM [Suspect]
     Active Substance: LORAZEPAM
     Dosage: 4 MG/DAY
     Route: 048
  17. PAROXETINE [Suspect]
     Active Substance: PAROXETINE
     Indication: Schizophrenia
     Dosage: UNK
     Route: 065
  18. Flupentixol depot [Concomitant]
     Indication: Schizophrenia
     Dosage: 20 MILLIGRAM/4 WEEKS
     Route: 065
  19. RISPERIDONE [Concomitant]
     Active Substance: RISPERIDONE
     Indication: Schizophrenia
     Dosage: UNK
     Route: 065
  20. RISPERIDONE [Concomitant]
     Active Substance: RISPERIDONE
     Dosage: UNK (TITRATED UP TO 3 MG)
     Route: 065
  21. RISPERIDONE [Concomitant]
     Active Substance: RISPERIDONE
     Dosage: 3 MG/DAY
     Route: 065
  22. RISPERIDONE [Concomitant]
     Active Substance: RISPERIDONE
     Dosage: 2 MILLIGRAM
     Route: 065

REACTIONS (2)
  - Hypersexuality [Recovered/Resolved]
  - Therapy non-responder [Unknown]
